FAERS Safety Report 24435116 (Version 3)
Quarter: 2025Q3

REPORT INFORMATION
  Report Type: Report from Study
  Country: US (occurrence: US)
  Receive Date: 20241014
  Receipt Date: 20250810
  Transmission Date: 20251021
  Serious: Yes (Other)
  Sender: ALEXION PHARMACEUTICALS
  Company Number: US-AstraZeneca-CH-00687076A

PATIENT
  Sex: Male

DRUGS (1)
  1. ULTOMIRIS [Suspect]
     Active Substance: RAVULIZUMAB-CWVZ
     Indication: Myasthenia gravis

REACTIONS (11)
  - Myasthenia gravis [Unknown]
  - Neuropathy peripheral [Unknown]
  - Head injury [Recovered/Resolved]
  - Tooth fracture [Unknown]
  - Lymphadenopathy [Unknown]
  - Bruxism [Unknown]
  - Abscess [Unknown]
  - Cyst [Unknown]
  - Joint swelling [Unknown]
  - Gait disturbance [Unknown]
  - Skin texture abnormal [Unknown]

NARRATIVE: CASE EVENT DATE: 20240101
